FAERS Safety Report 5585058-9 (Version None)
Quarter: 2008Q1

REPORT INFORMATION
  Report Type: 
  Country: None (occurrence: None)
  Receive Date: 20080109
  Receipt Date: 20080102
  Transmission Date: 20080703
  Serious: Yes (Hospitalization)
  Sender: FDA-Public Use
  Company Number: FR-JNJFOC-20080100618

PATIENT
  Age: 68 Year
  Sex: Female

DRUGS (8)
  1. REMICADE [Suspect]
     Indication: CROHN'S DISEASE
     Route: 042
  2. REMICADE [Suspect]
     Indication: ANKYLOSING SPONDYLITIS
     Route: 042
  3. NEXIUM [Concomitant]
  4. OROCAL [Concomitant]
  5. ATENOLOL [Concomitant]
  6. KARDEGIC [Concomitant]
  7. SPIRONOLACTONE [Concomitant]
  8. CORTANCYL [Concomitant]

REACTIONS (1)
  - PULMONARY TUBERCULOSIS [None]
